FAERS Safety Report 7869599-7 (Version None)
Quarter: 2011Q4

REPORT INFORMATION
  Report Type: 
  Country: None (occurrence: None)
  Receive Date: 20111028
  Receipt Date: 20110106
  Transmission Date: 20120403
  Serious: No
  Sender: FDA-Public Use
  Company Number: US-AMGEN-USASP2010010186

PATIENT
  Age: 59 Year
  Sex: Female

DRUGS (2)
  1. ENBREL [Suspect]
     Indication: PSORIATIC ARTHROPATHY
     Dosage: 50 MG, QWK
     Dates: start: 20100923
  2. ENBREL [Suspect]
     Indication: PSORIASIS

REACTIONS (9)
  - CHEST DISCOMFORT [None]
  - EYELID OEDEMA [None]
  - RASH PUSTULAR [None]
  - RHEUMATOID ARTHRITIS [None]
  - BACK PAIN [None]
  - RHINORRHOEA [None]
  - PAIN IN EXTREMITY [None]
  - ERYTHEMA OF EYELID [None]
  - NECK PAIN [None]
